FAERS Safety Report 10024385 (Version 1)
Quarter: 2014Q1

REPORT INFORMATION
  Report Type: Spontaneous
  Country: US (occurrence: None)
  Receive Date: 20140304
  Receipt Date: 20140304
  Transmission Date: 20141002
  Serious: Yes (Hospitalization)
  Sender: FDA-Public Use
  Company Number: RB-48440-2013

PATIENT
  Age: 0 Day
  Sex: 0

DRUGS (5)
  1. SUBOXONE [Suspect]
     Indication: PRODUCT USED FOR UNKNOWN INDICATION
     Route: 064
     Dates: start: 20071030, end: 200711
  2. SUBUTEX 8 MG [Suspect]
     Indication: PRODUCT USED FOR UNKNOWN INDICATION
     Route: 064
     Dates: start: 200711, end: 200807
  3. ZOLOFT [Suspect]
     Indication: PRODUCT USED FOR UNKNOWN INDICATION
     Dates: start: 200007, end: 200711
  4. AMBIEN [Suspect]
     Indication: PRODUCT USED FOR UNKNOWN INDICATION
     Route: 064
     Dates: start: 200711, end: 200807
  5. MARIJUANA [Suspect]
     Indication: PRODUCT USED FOR UNKNOWN INDICATION
     Dosage: (AMOUNT USED UNKNOWN)?

REACTIONS (5)
  - Drug withdrawal syndrome neonatal [None]
  - Irritability [None]
  - Diarrhoea [None]
  - Exposure during breast feeding [None]
  - Foetal exposure during pregnancy [None]
